FAERS Safety Report 6003772-8 (Version None)
Quarter: 2008Q4

REPORT INFORMATION
  Report Type: 
  Country: None (occurrence: None)
  Receive Date: 20081216
  Receipt Date: 20081210
  Transmission Date: 20090506
  Serious: Yes (Death, Congenital Anomaly)
  Sender: FDA-Public Use
  Company Number: DE-ROCHE-588285

PATIENT

DRUGS (6)
  1. VALGANCICLOVIR HCL [Suspect]
     Indication: DRUG USE FOR UNKNOWN INDICATION
     Route: 064
     Dates: start: 20040101, end: 20060925
  2. FORTOVASE [Suspect]
     Indication: DRUG USE FOR UNKNOWN INDICATION
     Dosage: 17 AND 1/2 WEEKS TO DELIVERY AND UNSPECIFIED ROUTE
     Route: 064
     Dates: start: 20060925, end: 20070201
  3. SUSTIVA [Suspect]
     Indication: DRUG USE FOR UNKNOWN INDICATION
     Dosage: UNSPECIFIED ROUTE, PATIENT TO CONTINUE (PTC) DRUG TO 17 AND 1/2 WEEKS
     Route: 064
     Dates: start: 20050101, end: 20060925
  4. COTRIMOXAZOLE [Suspect]
     Indication: DRUG USE FOR UNKNOWN INDICATION
     Route: 064
     Dates: end: 20060925
  5. COMBIVIR [Suspect]
     Indication: DRUG USE FOR UNKNOWN INDICATION
     Dosage: UNSPECIFIED ROUTES OR DATES
     Route: 064
     Dates: start: 20040101
  6. NORVIR [Suspect]
     Indication: DRUG USE FOR UNKNOWN INDICATION
     Dosage: 17 AND 1/2 WEEKS TO DELIVERY, UNSPECIFIED ROUTE
     Route: 064
     Dates: start: 20060925, end: 20070201

REACTIONS (4)
  - DEFORMITY [None]
  - FOOT DEFORMITY [None]
  - NEURAL TUBE DEFECT [None]
  - UROGENITAL DISORDER [None]
